FAERS Safety Report 6298052-X (Version None)
Quarter: 2009Q3

REPORT INFORMATION
  Report Type: 
  Country: None (occurrence: None)
  Receive Date: 20090804
  Receipt Date: 20090804
  Transmission Date: 20100115
  Serious: No
  Sender: FDA-Public Use
  Company Number: None

PATIENT
  Age: 49 Year
  Sex: Female
  Weight: 56.6996 kg

DRUGS (2)
  1. METHOTREXATE [Suspect]
     Indication: RHEUMATOID ARTHRITIS
     Dosage: 2.5, 6 ONE DAY A WEEK, PO
     Route: 048
     Dates: start: 20090214, end: 20090715
  2. METHOTREXATE [Suspect]
     Indication: TENOSYNOVITIS
     Dosage: 2.5, 6 ONE DAY A WEEK, PO
     Route: 048
     Dates: start: 20090214, end: 20090715

REACTIONS (9)
  - ALOPECIA [None]
  - CONFUSIONAL STATE [None]
  - DIARRHOEA [None]
  - FATIGUE [None]
  - INFLAMMATION [None]
  - LYMPHADENOPATHY [None]
  - MICTURITION URGENCY [None]
  - NO THERAPEUTIC RESPONSE [None]
  - SOMNOLENCE [None]
